FAERS Safety Report 7943353-X (Version None)
Quarter: 2011Q4

REPORT INFORMATION
  Report Type: 
  Country: None (occurrence: None)
  Receive Date: 20111128
  Receipt Date: 20111114
  Transmission Date: 20120403
  Serious: Yes (Congenital Anomaly)
  Sender: FDA-Public Use
  Company Number: JP-SANOFI-AVENTIS-2011SA076547

PATIENT

DRUGS (1)
  1. ZOLPIDEM [Suspect]
     Route: 064

REACTIONS (1)
  - FINGER HYPOPLASIA [None]
